FAERS Safety Report 6596958-5 (Version None)
Quarter: 2010Q1

REPORT INFORMATION
  Report Type: 
  Country: None (occurrence: None)
  Receive Date: 20100222
  Receipt Date: 20100222
  Transmission Date: 20100710
  Serious: Yes (Hospitalization, Other)
  Sender: FDA-Public Use
  Company Number: None

PATIENT
  Sex: Female
  Weight: 45 kg

DRUGS (3)
  1. ADALIMUMAB 40MG/0.8 ML ABBOT [Suspect]
     Indication: JUVENILE ARTHRITIS
     Dosage: 40MG Q O WEEK SQ
     Route: 058
     Dates: start: 20090801, end: 20091119
  2. METHOTREXATE [Concomitant]
  3. NAPROXEN [Concomitant]

REACTIONS (4)
  - COCCIDIOIDOMYCOSIS [None]
  - IMPETIGO [None]
  - NO THERAPEUTIC RESPONSE [None]
  - WAIST CIRCUMFERENCE INCREASED [None]
